FAERS Safety Report 6229656-8 (Version None)
Quarter: 2009Q2

REPORT INFORMATION
  Report Type: 
  Country: None (occurrence: None)
  Receive Date: 20090608
  Receipt Date: 20080912
  Transmission Date: 20091009
  Serious: No
  Sender: FDA-Public Use
  Company Number: APP200800797

PATIENT
  Age: 75 Year
  Sex: Female

DRUGS (3)
  1. PROTAMINE SULFATE [Suspect]
     Indication: HEPARIN NEUTRALISATION THERAPY
     Dosage: ONCE
     Dates: start: 20051027, end: 20051027
  2. HEPARIN [Concomitant]
  3. INSULIN [Concomitant]

REACTIONS (1)
  - DRUG HYPERSENSITIVITY [None]
